FAERS Safety Report 5279031-8 (Version None)
Quarter: 2007Q1

REPORT INFORMATION
  Report Type: 
  Country: None (occurrence: None)
  Receive Date: 20070328
  Receipt Date: 20061220
  Transmission Date: 20070707
  Serious: No
  Sender: FDA-Public Use
  Company Number: US-AMGEN-US204237

PATIENT
  Sex: Male
  Weight: 90.8 kg

DRUGS (6)
  1. NEULASTA [Suspect]
     Indication: CHEMOTHERAPY
     Route: 058
     Dates: start: 20040101
  2. GLUCOPHAGE [Concomitant]
     Route: 065
     Dates: start: 20020101
  3. KLONOPIN [Concomitant]
     Route: 065
     Dates: start: 20000101
  4. LIPITOR [Concomitant]
     Route: 065
     Dates: start: 20000101
  5. VITAMINS [Concomitant]
     Route: 065
  6. ASPIRIN [Concomitant]
     Route: 065
     Dates: start: 19811101

REACTIONS (4)
  - BONE PAIN [None]
  - DIZZINESS [None]
  - MUSCLE SPASMS [None]
  - PAIN [None]
